FAERS Safety Report 6226226-2 (Version None)
Quarter: 2009Q2

REPORT INFORMATION
  Report Type: 
  Country: None (occurrence: None)
  Receive Date: 20090612
  Receipt Date: 20090512
  Transmission Date: 20091009
  Serious: No
  Sender: FDA-Public Use
  Company Number: US-ABBOTT-09P-163-0572889-00

PATIENT
  Sex: Female
  Weight: 104.42 kg

DRUGS (4)
  1. HUMIRA [Suspect]
     Indication: CROHN'S DISEASE
     Route: 058
     Dates: start: 20071001, end: 20080201
  2. HUMIRA [Suspect]
     Route: 058
     Dates: start: 20080201
  3. PENTASA [Concomitant]
     Indication: CROHN'S DISEASE
     Route: 048
  4. PRILOSEC [Concomitant]
     Indication: ULCER
     Route: 048

REACTIONS (5)
  - ARTHROPOD BITE [None]
  - DRUG INEFFECTIVE [None]
  - HOT FLUSH [None]
  - NAUSEA [None]
  - PAIN IN EXTREMITY [None]
